FAERS Safety Report 16614483 (Version 2)
Quarter: 2020Q3

REPORT INFORMATION
  Report Type: Report from Study
  Country: FR (occurrence: FR)
  Receive Date: 20190723
  Receipt Date: 20200728
  Transmission Date: 20201102
  Serious: Yes (Hospitalization, Other)
  Sender: FDA-Public Use
  Company Number: FR-BRISTOL-MYERS SQUIBB COMPANY-BMS-2019-070060

PATIENT
  Age: 57 Year
  Sex: Male

DRUGS (1)
  1. NIVOLUMAB [Suspect]
     Active Substance: NIVOLUMAB
     Indication: RENAL CANCER METASTATIC
     Dosage: 480 MILLIGRAM, Q4WK
     Route: 065
     Dates: start: 20190506

REACTIONS (3)
  - Erectile dysfunction [Not Recovered/Not Resolved]
  - Hyperthyroidism [Recovering/Resolving]
  - Pelvic pain [Recovered/Resolved]

NARRATIVE: CASE EVENT DATE: 20190621
